FAERS Safety Report 10311881 (Version 2)
Quarter: 2014Q3

REPORT INFORMATION
  Report Type: Report from Study
  Country: CA (occurrence: CA)
  Receive Date: 20140717
  Receipt Date: 20140801
  Transmission Date: 20150326
  Serious: Yes (Other)
  Sender: FDA-Public Use
  Company Number: CA-ABBVIE-14P-028-1259830-00

PATIENT
  Age: 57 Year
  Sex: Male
  Weight: 72.19 kg

DRUGS (7)
  1. METOTREXATE [Concomitant]
     Active Substance: METHOTREXATE SODIUM
     Indication: RHEUMATOID ARTHRITIS
     Dates: start: 2009, end: 2014
  2. NASAL STEROID [Concomitant]
     Indication: PRODUCT USED FOR UNKNOWN INDICATION
     Route: 045
  3. DILANTIN [Concomitant]
     Active Substance: PHENYTOIN
     Indication: EPILEPSY
  4. ADVAIR HFA [Concomitant]
     Active Substance: FLUTICASONE PROPIONATE\SALMETEROL XINAFOATE
     Indication: ASTHMA
     Route: 055
  5. HUMIRA [Suspect]
     Active Substance: ADALIMUMAB
     Indication: RHEUMATOID ARTHRITIS
     Route: 058
     Dates: start: 2007, end: 20140624
  6. HUMIRA [Suspect]
     Active Substance: ADALIMUMAB
     Dates: start: 20140722
  7. METOTREXATE [Concomitant]
     Active Substance: METHOTREXATE SODIUM
     Dates: start: 2014

REACTIONS (12)
  - Dyspnoea [Unknown]
  - Nasal disorder [Unknown]
  - Sinus polyp [Recovered/Resolved]
  - Procedural pain [Recovering/Resolving]
  - Headache [Unknown]
  - Weight decreased [Not Recovered/Not Resolved]
  - Rhinorrhoea [Unknown]
  - Nasal obstruction [Recovered/Resolved]
  - Weight decreased [Recovered/Resolved]
  - Nasal polyps [Recovered/Resolved]
  - Insomnia [Unknown]
  - Nasal congestion [Unknown]

NARRATIVE: CASE EVENT DATE: 2007
